FAERS Safety Report 6304115-2 (Version None)
Quarter: 2009Q3

REPORT INFORMATION
  Report Type: 
  Country: None (occurrence: None)
  Receive Date: 20090806
  Receipt Date: 20090729
  Transmission Date: 20100115
  Serious: Yes (Other)
  Sender: FDA-Public Use
  Company Number: 2008AL005374

PATIENT
  Age: 56 Year
  Sex: Male

DRUGS (8)
  1. DIGOXIN [Suspect]
     Dosage: 0.125MG, PO
     Route: 048
     Dates: start: 20070801, end: 20080401
  2. ASACOL [Concomitant]
  3. CLOTRIMAZOLE [Concomitant]
  4. LEVITRA [Concomitant]
  5. PAROXETINE HCL [Concomitant]
  6. METHYLPREDNISOLONE [Concomitant]
  7. CLOTRIMAZOLE/BETAMETH [Concomitant]
  8. LORAZEPAM [Concomitant]

REACTIONS (2)
  - MULTIPLE INJURIES [None]
  - OVERDOSE [None]
